FAERS Safety Report 14949603 (Version 2)
Quarter: 2018Q2

REPORT INFORMATION
  Report Type: Spontaneous
  Country: US (occurrence: US)
  Receive Date: 20180529
  Receipt Date: 20180628
  Transmission Date: 20180711
  Serious: Yes (Other)
  Sender: FDA-Public Use
  Company Number: US-GILEAD-2018-0340655

PATIENT
  Age: 58 Year
  Sex: Male
  Weight: 102.4 kg

DRUGS (9)
  1. ETODOLAC. [Concomitant]
     Active Substance: ETODOLAC
  2. HARVONI [Suspect]
     Active Substance: LEDIPASVIR\SOFOSBUVIR
     Indication: CHRONIC HEPATITIS C
     Dosage: UNK
     Route: 065
  3. BUPROPION. [Concomitant]
     Active Substance: BUPROPION
  4. TEMAZEPAM. [Concomitant]
     Active Substance: TEMAZEPAM
  5. RANITIDINE. [Concomitant]
     Active Substance: RANITIDINE
  6. ZANTAC [Concomitant]
     Active Substance: RANITIDINE HYDROCHLORIDE
  7. LOSARTAN AND HYDROCHLOROTHIAZIDE [Concomitant]
     Active Substance: HYDROCHLOROTHIAZIDE\LOSARTAN POTASSIUM
  8. HYDROCODONE [Concomitant]
     Active Substance: HYDROCODONE
  9. PROAIR HFA [Concomitant]
     Active Substance: ALBUTEROL SULFATE

REACTIONS (2)
  - Treatment failure [Unknown]
  - Hepatitis C [Unknown]
